FAERS Safety Report 9351149 (Version 1)
Quarter: 2013Q2

REPORT INFORMATION
  Report Type: Spontaneous
  Country: US (occurrence: US)
  Receive Date: 20130617
  Receipt Date: 20130617
  Transmission Date: 20140414
  Serious: No
  Sender: FDA-Public Use
  Company Number: US-UPSHER-SMITH LABORATORIES, INC.-13001274

PATIENT
  Sex: Male

DRUGS (3)
  1. OXYBUTYNIN CHLORIDE [Suspect]
     Indication: PROSTATOMEGALY
     Dosage: 5 MG, TID
     Dates: start: 20130406
  2. CIPROFLOXACIN [Concomitant]
     Dosage: UNK
  3. ACETAMINOPHEN W/HYDROCODONE [Concomitant]
     Dosage: UNK

REACTIONS (1)
  - Oedema peripheral [Not Recovered/Not Resolved]
